FAERS Safety Report 5697739-7 (Version None)
Quarter: 2008Q2

REPORT INFORMATION
  Report Type: 
  Country: None (occurrence: None)
  Receive Date: 20080408
  Receipt Date: 20080331
  Transmission Date: 20081010
  Serious: Yes (Life-Threatening, Hospitalization)
  Sender: FDA-Public Use
  Company Number: JP-GILEAD-2007-0013205

PATIENT
  Sex: Male
  Weight: 66 kg

DRUGS (44)
  1. HEPSERA [Suspect]
     Route: 048
     Dates: start: 20030221, end: 20060217
  2. LAMIVUDINE [Suspect]
     Indication: DRUG USE FOR UNKNOWN INDICATION
     Route: 048
     Dates: start: 20010101, end: 20050816
  3. LAMIVUDINE [Suspect]
     Route: 048
     Dates: start: 20061026
  4. PREDONINE [Suspect]
  5. ME-PREDNISOLONE NA SUCC. [Suspect]
  6. FUROSEMIDE [Concomitant]
  7. FAMOTIDINE [Concomitant]
  8. PROTEIN SUPPLEMENT [Concomitant]
  9. FELBINAC [Concomitant]
  10. SPIRONOLACTONE [Concomitant]
  11. AZOSEMIDE [Concomitant]
  12. BROTIZOLAM [Concomitant]
  13. AZULENE SODIUM SULPHONATE [Concomitant]
  14. PREDNISOLON VALEROACETATE [Concomitant]
  15. MAGNESIUM OXIDE [Concomitant]
  16. LACTULOSE [Concomitant]
  17. PENTOXYVERINE CITRATE [Concomitant]
  18. BISOLVON [Concomitant]
  19. LOXOPROFEN [Concomitant]
  20. UFT [Concomitant]
  21. LEVOFLOXACIN [Concomitant]
  22. SODIUM ALGINATE [Concomitant]
  23. AMINOLEBAN EN [Concomitant]
  24. MENATETRENONE [Concomitant]
  25. KETOPROFEN [Concomitant]
  26. INDOMETHACIN [Concomitant]
  27. AMMONIUM GLYCYRRHIZATE [Concomitant]
  28. ALBUMIN (HUMAN) [Concomitant]
  29. POTACOL-R [Concomitant]
  30. ELECTROLYTES [Concomitant]
  31. VITAMEDIN [Concomitant]
  32. MICAFUNGIN [Concomitant]
  33. MENATETRENONE [Concomitant]
  34. AMINO ACID INJ [Concomitant]
  35. SOYBEAN OIL [Concomitant]
  36. SOLULACT [Concomitant]
  37. LIGNOCAINE HYDROCHLORIDE [Concomitant]
  38. FLURBIPROFEN AXETIL [Concomitant]
  39. HYDROCORTISONE NA SUCC [Concomitant]
  40. BAKTAR [Concomitant]
  41. VITAMIN A OIL [Concomitant]
  42. DEQUALINIUM CHLORIDE [Concomitant]
  43. HEPARIN SODIUM [Concomitant]
  44. MAINTENANCE MEDIUM (WITH GLUCOSE) [Concomitant]

REACTIONS (2)
  - HEPATITIS B [None]
  - PNEUMOCYSTIS JIROVECI PNEUMONIA [None]
